FAERS Safety Report 19291464 (Version 1)
Quarter: 2021Q2

REPORT INFORMATION
  Report Type: Spontaneous
  Country: FR (occurrence: FR)
  Receive Date: 20210523
  Receipt Date: 20210523
  Transmission Date: 20210717
  Serious: Yes (Life-Threatening)
  Sender: FDA-Public Use
  Company Number: FR-TEVA-2021-FR-1913522

PATIENT
  Age: 41 Year
  Sex: Male
  Weight: 82 kg

DRUGS (2)
  1. DOXORUBICINE TEVA [Suspect]
     Active Substance: DOXORUBICIN
     Indication: AXILLARY MASS
     Dosage: ROUTE OF ADMINISTRATION : IV , UNIT DOSE : 150 MG
     Route: 042
     Dates: start: 20200928, end: 20210112
  2. MODERNA COVID?19 VACCINE [Suspect]
     Active Substance: CX-024414
     Indication: COVID-19 IMMUNISATION
     Dosage: INTRAMUSCULAR , ROUTE OF ADMINISTRATION : IM .
     Route: 030
     Dates: start: 20210212, end: 20210212

REACTIONS (1)
  - Left ventricular failure [Not Recovered/Not Resolved]

NARRATIVE: CASE EVENT DATE: 20210213
